FAERS Safety Report 21017347 (Version 1)
Quarter: 2022Q2

REPORT INFORMATION
  Report Type: Spontaneous
  Country: FR (occurrence: FR)
  Receive Date: 20220628
  Receipt Date: 20220628
  Transmission Date: 20220721
  Serious: Yes (Life-Threatening)
  Sender: FDA-Public Use
  Company Number: None

PATIENT
  Age: 67 Year
  Sex: Male
  Weight: 96 kg

DRUGS (4)
  1. DAPTOMYCIN [Suspect]
     Active Substance: DAPTOMYCIN
     Indication: Osteitis
     Dosage: 850 MG, 1X/DAY
     Route: 051
     Dates: start: 20220506, end: 20220530
  2. AVIBACTAM SODIUM\CEFTAZIDIME [Suspect]
     Active Substance: AVIBACTAM SODIUM\CEFTAZIDIME
     Indication: Enterobacter infection
     Dosage: UNK, 1X/DAY
     Route: 051
     Dates: start: 20220519, end: 20220530
  3. CLINDAMYCIN HYDROCHLORIDE [Suspect]
     Active Substance: CLINDAMYCIN HYDROCHLORIDE
     Indication: Osteitis
     Dosage: UNK
     Route: 051
     Dates: start: 20220511, end: 20220530
  4. AZTREONAM [Suspect]
     Active Substance: AZTREONAM
     Indication: Enterobacter infection
     Dosage: UNK
     Route: 051
     Dates: start: 20220519, end: 20220530

REACTIONS (3)
  - Eosinophilic pneumonia [Recovering/Resolving]
  - Acute kidney injury [Recovering/Resolving]
  - Off label use [Unknown]

NARRATIVE: CASE EVENT DATE: 20220511
